FAERS Safety Report 12657639 (Version 1)
Quarter: 2016Q3

REPORT INFORMATION
  Report Type: Spontaneous
  Country: US (occurrence: US)
  Receive Date: 20160816
  Receipt Date: 20160816
  Transmission Date: 20161109
  Serious: No
  Sender: FDA-Public Use
  Company Number: US-LUNDBECK-DKLU2016566

PATIENT
  Sex: Male

DRUGS (2)
  1. NORTHERA [Suspect]
     Active Substance: DROXIDOPA
     Dosage: 200MG PLUS 300MG TO MAKE 500MG
     Route: 048
     Dates: start: 20150408
  2. NORTHERA [Suspect]
     Active Substance: DROXIDOPA
     Indication: SYNCOPE
     Dosage: 200MG PLUS 300MG TO MAKE 500MG
     Route: 048
     Dates: start: 20150408

REACTIONS (1)
  - Drug ineffective [Unknown]
